FAERS Safety Report 25430257 (Version 1)
Quarter: 2025Q2

REPORT INFORMATION
  Report Type: Spontaneous
  Country: US (occurrence: US)
  Receive Date: 20250612
  Receipt Date: 20250612
  Transmission Date: 20250716
  Serious: No
  Sender: FRESENIUS KABI
  Company Number: US-FreseniusKabi-FK202507917

PATIENT
  Age: 54 Year
  Sex: Female

DRUGS (1)
  1. TYENNE [Suspect]
     Active Substance: TOCILIZUMAB-AAZG
     Indication: Rheumatoid arthritis
     Dosage: FORM OF ADMINISTRASTION: INJECTION?ONGOING TREATMENT
     Route: 058
     Dates: start: 202502

REACTIONS (2)
  - Rheumatoid arthritis [Unknown]
  - Therapy interrupted [Unknown]

NARRATIVE: CASE EVENT DATE: 20250602
